FAERS Safety Report 5553149-4 (Version None)
Quarter: 2007Q4

REPORT INFORMATION
  Report Type: 
  Country: None (occurrence: None)
  Receive Date: 20071212
  Receipt Date: 20070709
  Transmission Date: 20080405
  Serious: No
  Sender: FDA-Public Use
  Company Number: US-AMGEN-KDL227545

PATIENT
  Sex: Female

DRUGS (13)
  1. ENBREL [Suspect]
     Indication: PSORIATIC ARTHROPATHY
     Route: 058
     Dates: start: 20070409
  2. ENBREL [Suspect]
     Indication: PSORIASIS
  3. ZYRTEC [Concomitant]
  4. NORVASC [Concomitant]
  5. WELLBUTRIN [Concomitant]
  6. ZETIA [Concomitant]
  7. ACCUPRIL [Concomitant]
  8. LEVOXYL [Concomitant]
  9. AMITRIPTLINE HCL [Concomitant]
  10. SINGULAIR [Concomitant]
  11. ALBUTEROL [Concomitant]
  12. FIORINAL [Concomitant]
  13. ALEVE [Concomitant]

REACTIONS (3)
  - BURNING SENSATION [None]
  - ERYTHEMA [None]
  - OEDEMA PERIPHERAL [None]
